FAERS Safety Report 6191095-6 (Version None)
Quarter: 2009Q2

REPORT INFORMATION
  Report Type: 
  Country: None (occurrence: None)
  Receive Date: 20090513
  Receipt Date: 20090513
  Transmission Date: 20091009
  Serious: No
  Sender: FDA-Public Use
  Company Number: None

PATIENT
  Sex: Male

DRUGS (2)
  1. BEVACIZUMAB [Suspect]
     Indication: OVARIAN CANCER
     Dosage: 975MG Q 2 WEEKS IVPB
     Route: 042
     Dates: start: 20080430, end: 20090305
  2. GEMCITIBINE IVPB [Concomitant]

REACTIONS (2)
  - BLOOD CREATININE INCREASED [None]
  - PROTEINURIA [None]
